FAERS Safety Report 5648754-0 (Version None)
Quarter: 2008Q1

REPORT INFORMATION
  Report Type: 
  Country: None (occurrence: None)
  Receive Date: 20080304
  Receipt Date: 20080222
  Transmission Date: 20080703
  Serious: Yes (Hospitalization)
  Sender: FDA-Public Use
  Company Number: AU-AMGEN-US264962

PATIENT
  Sex: Male

DRUGS (5)
  1. PANITUMUMAB [Suspect]
     Indication: SQUAMOUS CELL CARCINOMA
     Route: 042
     Dates: start: 20080107
  2. FLUOROURACIL [Suspect]
     Dates: start: 20080107
  3. CISPLATIN [Suspect]
     Dates: start: 20080107
  4. VALIUM [Concomitant]
  5. ACETAMINOPHEN [Concomitant]

REACTIONS (2)
  - NEUTROPENIA [None]
  - RENAL IMPAIRMENT [None]
